FAERS Safety Report 4852093-5 (Version None)
Quarter: 2005Q4

REPORT INFORMATION
  Report Type: 
  Country: None (occurrence: None)
  Receive Date: 20051209
  Receipt Date: 20051129
  Transmission Date: 20060501
  Serious: Yes (Death)
  Sender: FDA-Public Use
  Company Number: 219896

PATIENT
  Age: 8 Year
  Sex: Male
  Weight: 21.818 kg

DRUGS (4)
  1. NUTROPIN [Suspect]
     Indication: RADIOTHERAPY
     Dosage: 0.03 MG SUBCUTANEOUS
     Route: 058
     Dates: start: 20030701, end: 20031102
  2. CYCLOPHOSPHAMIDE [Concomitant]
  3. MAGNESIUM SULFATE [Concomitant]
  4. SYNTHROID [Concomitant]

REACTIONS (2)
  - MEDULLOBLASTOMA [None]
  - RECURRENT CANCER [None]
